FAERS Safety Report 17179180 (Version 1)
Quarter: 2019Q4

REPORT INFORMATION
  Report Type: Spontaneous
  Country: CA (occurrence: CA)
  Receive Date: 20191219
  Receipt Date: 20191219
  Transmission Date: 20200122
  Serious: Yes (Death)
  Sender: FDA-Public Use
  Company Number: CA-HORIZON-RAV-0415-2019

PATIENT
  Age: 1 Year
  Sex: Female

DRUGS (2)
  1. ENOXAPARIN [Concomitant]
     Active Substance: ENOXAPARIN
  2. RAVICTI [Suspect]
     Active Substance: GLYCEROL PHENYLBUTYRATE
     Indication: ARGININOSUCCINATE LYASE DEFICIENCY
     Dosage: STARTED AT 0.3 ML QID, INCREASED TO 0.7 ML QID ON 23-APR-2019
     Dates: start: 20181105, end: 20190812

REACTIONS (3)
  - Off label use [Not Recovered/Not Resolved]
  - Death [Fatal]
  - Product administered to patient of inappropriate age [Not Recovered/Not Resolved]

NARRATIVE: CASE EVENT DATE: 20181105
